FAERS Safety Report 5907828-7 (Version None)
Quarter: 2008Q4

REPORT INFORMATION
  Report Type: 
  Country: None (occurrence: None)
  Receive Date: 20081003
  Receipt Date: 20080922
  Transmission Date: 20090506
  Serious: Yes (Death)
  Sender: FDA-Public Use
  Company Number: MX-PFIZER INC-2006052272

PATIENT
  Sex: Female
  Weight: 53 kg

DRUGS (1)
  1. SU-011,248 [Suspect]
     Indication: RENAL CANCER
     Route: 048
     Dates: start: 20060323, end: 20060411

REACTIONS (1)
  - GASTRITIS HAEMORRHAGIC [None]
